FAERS Safety Report 7637215-5 (Version None)
Quarter: 2011Q3

REPORT INFORMATION
  Report Type: 
  Country: None (occurrence: None)
  Receive Date: 20110726
  Receipt Date: 20110713
  Transmission Date: 20111222
  Serious: Yes (Hospitalization, Other)
  Sender: FDA-Public Use
  Company Number: PHHY2011TR63353

PATIENT
  Age: 86 Year
  Sex: Female

DRUGS (1)
  1. RIVASTIGMINE [Suspect]
     Indication: DEMENTIA ALZHEIMER'S TYPE
     Dosage: 9.5 MG
     Route: 062

REACTIONS (10)
  - HYPONATRAEMIA [None]
  - CONFUSIONAL STATE [None]
  - NAUSEA [None]
  - URINARY TRACT INFECTION [None]
  - FATIGUE [None]
  - DECREASED APPETITE [None]
  - LETHARGY [None]
  - DEPRESSED LEVEL OF CONSCIOUSNESS [None]
  - DISORIENTATION [None]
  - BLOOD PRESSURE DIASTOLIC DECREASED [None]
